FAERS Safety Report 18494126 (Version 1)
Quarter: 2020Q4

REPORT INFORMATION
  Report Type: Spontaneous
  Country: FR (occurrence: FR)
  Receive Date: 20201112
  Receipt Date: 20201112
  Transmission Date: 20210114
  Serious: Yes (Hospitalization)
  Sender: FDA-Public Use
  Company Number: FR-AMGEN-FRASP2020182832

PATIENT
  Age: 86 Year
  Sex: Female
  Weight: 46 kg

DRUGS (10)
  1. LAMALINE [ATROPA BELLADONNA EXTRACT;CAFFEINE;PAPAVER SOMNIFERUM TINCTU [Concomitant]
     Active Substance: ACETAMINOPHEN\BELLADONNA LEAF\CAFFEINE\OPIUM
     Dosage: UNK
  2. FLECTOR [Concomitant]
     Active Substance: DICLOFENAC EPOLAMINE
     Dosage: UNK
  3. CRESTOR [Concomitant]
     Active Substance: ROSUVASTATIN CALCIUM
     Dosage: UNK
  4. ENBREL [Suspect]
     Active Substance: ETANERCEPT
     Indication: RHEUMATOID ARTHRITIS
     Dosage: 50 MG, WEEKLY
     Route: 058
     Dates: start: 201911
  5. KARDEGIC [Concomitant]
     Active Substance: ASPIRIN DL-LYSINE
     Dosage: UNK
  6. LANSOPRAZOLE. [Concomitant]
     Active Substance: LANSOPRAZOLE
     Dosage: UNK
  7. EZETROL [Concomitant]
     Active Substance: EZETIMIBE
     Dosage: UNK
  8. JANUMET [Concomitant]
     Active Substance: METFORMIN HYDROCHLORIDE\SITAGLIPTIN PHOSPHATE
     Dosage: UNK
  9. SOTALOL HCL [Concomitant]
     Active Substance: SOTALOL
     Dosage: UNK
  10. TELMISARTAN. [Concomitant]
     Active Substance: TELMISARTAN
     Dosage: UNK

REACTIONS (2)
  - Eosinophilia [Recovering/Resolving]
  - Rash pruritic [Recovered/Resolved]

NARRATIVE: CASE EVENT DATE: 20200331
